FAERS Safety Report 24860150 (Version 3)
Quarter: 2025Q2

REPORT INFORMATION
  Report Type: Report from Study
  Country: CZ (occurrence: CZ)
  Receive Date: 20250120
  Receipt Date: 20250419
  Transmission Date: 20250716
  Serious: Yes (Other)
  Sender: CELLTRION
  Company Number: CZ-CELLTRION INC.-2024CZ032737

PATIENT

DRUGS (17)
  1. INFLIXIMAB-DYYB [Suspect]
     Active Substance: INFLIXIMAB-DYYB
     Indication: Psoriatic arthropathy
     Dosage: 120 MG, Q2WEEKS
     Route: 058
     Dates: start: 20240619
  2. INFLIXIMAB-DYYB [Suspect]
     Active Substance: INFLIXIMAB-DYYB
     Dosage: 120 MG, Q2WEEKS
     Route: 058
     Dates: start: 20240703
  3. INFLIXIMAB-DYYB [Suspect]
     Active Substance: INFLIXIMAB-DYYB
     Dosage: 120 MG, Q2WEEKS
     Route: 058
     Dates: start: 20240717
  4. INFLIXIMAB-DYYB [Suspect]
     Active Substance: INFLIXIMAB-DYYB
     Dosage: 120 MG, Q2WEEKS
     Route: 058
     Dates: start: 20240731
  5. INFLIXIMAB-DYYB [Suspect]
     Active Substance: INFLIXIMAB-DYYB
     Dosage: 120 MG, Q2WEEKS
     Route: 058
     Dates: start: 20240814
  6. INFLIXIMAB-DYYB [Suspect]
     Active Substance: INFLIXIMAB-DYYB
     Dosage: 120 MG, Q2WEEKS
     Route: 058
     Dates: start: 20240828
  7. INFLIXIMAB-DYYB [Suspect]
     Active Substance: INFLIXIMAB-DYYB
     Dosage: 120 MG, Q2WEEKS
     Route: 058
     Dates: start: 20240911
  8. INFLIXIMAB-DYYB [Suspect]
     Active Substance: INFLIXIMAB-DYYB
     Dosage: 120 MG, Q2WEEKS
     Route: 058
     Dates: start: 20240925
  9. INFLIXIMAB-DYYB [Suspect]
     Active Substance: INFLIXIMAB-DYYB
     Dosage: 120 MG, Q2WEEKS
     Route: 058
     Dates: start: 20241009
  10. INFLIXIMAB-DYYB [Suspect]
     Active Substance: INFLIXIMAB-DYYB
     Dosage: 120 MG, Q2WEEKS
     Route: 058
     Dates: start: 20241023
  11. INFLIXIMAB-DYYB [Suspect]
     Active Substance: INFLIXIMAB-DYYB
     Dosage: 120 MG, Q2WEEKS
     Route: 058
     Dates: start: 20241106
  12. INFLIXIMAB-DYYB [Suspect]
     Active Substance: INFLIXIMAB-DYYB
     Dosage: 120 MG, Q2WEEKS
     Route: 058
     Dates: start: 20241120, end: 20241120
  13. TARKA [Concomitant]
     Active Substance: TRANDOLAPRIL\VERAPAMIL HYDROCHLORIDE
     Indication: Hypertension
     Route: 048
     Dates: start: 201504
  14. ALLOPURINOL [Concomitant]
     Active Substance: ALLOPURINOL
     Indication: Hyperuricaemia
     Route: 048
     Dates: start: 201504
  15. APO PANTO [Concomitant]
     Indication: Prophylaxis
     Route: 048
     Dates: start: 201706
  16. DICLOFENAC SODIUM [Concomitant]
     Active Substance: DICLOFENAC SODIUM
     Indication: Pain
     Dosage: 150 MG, ONCE PER WEEK
     Route: 048
     Dates: start: 201504
  17. BIOFENAC [ACECLOFENAC] [Concomitant]
     Indication: Pain
     Dosage: 100 MG, ONCE PER WEEK
     Route: 048
     Dates: start: 201504

REACTIONS (1)
  - Prostate cancer [Recovering/Resolving]

NARRATIVE: CASE EVENT DATE: 20241120
